FAERS Safety Report 4732647-7 (Version None)
Quarter: 2005Q3

REPORT INFORMATION
  Report Type: 
  Country: None (occurrence: None)
  Receive Date: 20050801
  Receipt Date: 20050719
  Transmission Date: 20060218
  Serious: Yes (Hospitalization, Other)
  Sender: FDA-Public Use
  Company Number: 2005103539

PATIENT
  Age: 41 Year
  Sex: Female
  Weight: 61.6892 kg

DRUGS (2)
  1. DEPO-MEDROL [Suspect]
     Indication: ILL-DEFINED DISORDER
     Dates: start: 20040722, end: 20040722
  2. SILVADENE (SULFADIAZINE SILVER) [Suspect]
     Indication: SINUSITIS FUNGAL
     Dates: start: 20050501, end: 20050501

REACTIONS (9)
  - ALLERGIC SINUSITIS [None]
  - CONDITION AGGRAVATED [None]
  - DRUG HYPERSENSITIVITY [None]
  - HEADACHE [None]
  - INSOMNIA [None]
  - MYCOTIC ALLERGY [None]
  - PAIN [None]
  - SINUS OPERATION [None]
  - WRONG DRUG ADMINISTERED [None]
